FAERS Safety Report 4748307-2 (Version None)
Quarter: 2005Q3

REPORT INFORMATION
  Report Type: 
  Country: None (occurrence: None)
  Receive Date: 20050818
  Receipt Date: 20050801
  Transmission Date: 20060218
  Serious: Yes (Hospitalization)
  Sender: FDA-Public Use
  Company Number: JP-MERCK-0508USA00975

PATIENT
  Age: 71 Year
  Sex: Female

DRUGS (3)
  1. FOSAMAX [Suspect]
     Indication: OSTEOPOROSIS
     Route: 048
     Dates: start: 20030703, end: 20050730
  2. CYANOCOBALAMIN [Concomitant]
     Indication: PERIPHERAL NERVE INJURY
     Route: 048
     Dates: start: 20050616, end: 20050730
  3. ANPLAG [Suspect]
     Indication: ARTERIAL OCCLUSIVE DISEASE
     Route: 048
     Dates: start: 20050616, end: 20050730

REACTIONS (1)
  - PLATELET COUNT DECREASED [None]
